FAERS Safety Report 6448426-9 (Version None)
Quarter: 2009Q4

REPORT INFORMATION
  Report Type: 
  Country: None (occurrence: None)
  Receive Date: 20091117
  Receipt Date: 20091102
  Transmission Date: 20100525
  Serious: Yes (Hospitalization)
  Sender: FDA-Public Use
  Company Number: PAR_03246_2009

PATIENT
  Sex: Female

DRUGS (18)
  1. IBUPROFEN [Suspect]
     Indication: DRUG USE FOR UNKNOWN INDICATION
     Dosage: (DF ORAL)
     Route: 048
     Dates: start: 20090721, end: 20090701
  2. BEROCCA /00485201/ (BEROCCA - VITAMINS NOS) (NOT SPECIFIED) [Suspect]
     Indication: DRUG USE FOR UNKNOWN INDICATION
     Dosage: (DF ORAL)
     Route: 048
     Dates: start: 20090721, end: 20090701
  3. VITAMIN B1 AND B6 (VITAMINE B1 B6 BAYER - PYRIDOXINE/THIAMINE) (NOT SP [Suspect]
     Indication: DRUG USE FOR UNKNOWN INDICATION
     Dosage: (2 DF QD ORAL)
     Route: 048
     Dates: start: 20090731
  4. RIFAMPICIN [Suspect]
     Indication: TUBERCULOSIS
     Dosage: (660 MG QD ORAL)
     Route: 048
     Dates: start: 20090730
  5. IXPRIM (IXPRIM - PARACETAMOL/TRAMADOL HYDROCHLORIDE) (NOT SPECIFIED) [Suspect]
     Indication: DRUG USE FOR UNKNOWN INDICATION
     Dosage: (DF ORAL)
     Route: 048
     Dates: start: 20090730, end: 20090801
  6. ROCEPHIN [Suspect]
     Indication: DRUG USE FOR UNKNOWN INDICATION
     Dosage: (1 G QD INTRAVENOUS)
     Route: 042
     Dates: start: 20090728, end: 20090729
  7. PERFALGAN (PERFALGAN - PARACETAMOL) (NOT SPECIFIED) [Suspect]
     Indication: DRUG USE FOR UNKNOWN INDICATION
     Dosage: (DF, 10 MG/ML INTRAVENOUS)
     Route: 042
     Dates: start: 20090728, end: 20090701
  8. TOPALGIC LP (TOPALGIC LP - TRAMADOL HYDROCHLORIDE) 50 MG (NOT SPECIFIE [Suspect]
     Indication: DRUG USE FOR UNKNOWN INDICATION
     Dosage: (DF ORAL)
     Route: 048
     Dates: start: 20090810, end: 20090825
  9. STROMECTOL (STROMECTOL - IVERMECTIN) (NOT SPECIFIED) [Suspect]
     Indication: DRUG USE FOR UNKNOWN INDICATION
     Dosage: (5 DF 1X ORAL)
     Route: 048
     Dates: start: 20090806, end: 20090806
  10. RIMIFON (RIMIFON - ISONIAZID) (NOT SPECIFIED) [Suspect]
     Indication: TUBERCULOSIS
     Dosage: (260 MG QD ORAL)
     Route: 048
     Dates: start: 20090730
  11. MYAMBUTOL [Suspect]
     Indication: TUBERCULOSIS
     Dosage: (1000 MG QD ORAL)
     Route: 048
     Dates: start: 20090730, end: 20090902
  12. PIRILENE (PIRILENE - PYRAZINAMIDE) (NOT SPECIFIED) [Suspect]
     Indication: TUBERCULOSIS
     Dosage: (1300 MG QD ORAL)
     Route: 048
     Dates: start: 20090730
  13. ACUPAN (ACUPAN - NEFOPAM HYDROCHLORIDE) (NOT SPECIFIED) [Suspect]
     Indication: DRUG USE FOR UNKNOWN INDICATION
     Dosage: (DF INTRAVENOUS)
     Route: 042
     Dates: start: 20090728, end: 20090701
  14. AERIUS /01398501/ (AERIUS - DESLORATADINE) (NOT SPECIFIED) [Suspect]
     Indication: DRUG USE FOR UNKNOWN INDICATION
     Dosage: (DF ORAL)
     Route: 048
     Dates: start: 20090721, end: 20090701
  15. AERIUS /01398501/ (AERIUS - DESLORATADINE) (NOT SPECIFIED) [Suspect]
     Indication: DRUG USE FOR UNKNOWN INDICATION
     Dosage: (DF ORAL)
     Route: 048
     Dates: start: 20090827
  16. ZEFFIX [Concomitant]
  17. IDARAC [Concomitant]
  18. TRIPHASIL-21 [Concomitant]

REACTIONS (2)
  - PRURITUS GENERALISED [None]
  - TOXIC SKIN ERUPTION [None]
